FAERS Safety Report 8851731 (Version 2)
Quarter: 2013Q2

REPORT INFORMATION
  Report Type: Spontaneous
  Country: US (occurrence: None)
  Receive Date: 20120426
  Receipt Date: 20120703
  Transmission Date: 20140414
  Serious: Yes (Hospitalization)
  Sender: FDA-Public Use
  Company Number: PHEH2012US001006

PATIENT
  Age: 40 Year
  Sex: Female
  Weight: 150 kg

DRUGS (2)
  1. GILENYA [Suspect]
     Indication: MULTIPLE SCLEROSIS
     Route: 048
     Dates: start: 20111208
  2. LEXAPRO [Concomitant]

REACTIONS (8)
  - Multiple sclerosis relapse [None]
  - Chest pain [None]
  - Hypoaesthesia [None]
  - Visual acuity reduced [None]
  - Eye disorder [None]
  - Vertigo [None]
  - Balance disorder [None]
  - Chest discomfort [None]
